FAERS Safety Report 6054115-5 (Version None)
Quarter: 2009Q1

REPORT INFORMATION
  Report Type: 
  Country: None (occurrence: None)
  Receive Date: 20090127
  Receipt Date: 20081228
  Transmission Date: 20090719
  Serious: Yes (Other)
  Sender: FDA-Public Use
  Company Number: US-PFIZER INC-2009150215

PATIENT

DRUGS (3)
  1. CHANTIX [Suspect]
  2. CLONOPIN [Concomitant]
  3. PAXIL [Concomitant]

REACTIONS (1)
  - ACUTE PSYCHOSIS [None]
